FAERS Safety Report 9085820 (Version 2)
Quarter: 2016Q2

REPORT INFORMATION
  Report Type: Spontaneous
  Country: ES (occurrence: ES)
  Receive Date: 20130131
  Receipt Date: 20160415
  Transmission Date: 20160815
  Serious: Yes (Hospitalization, Other)
  Sender: FDA-Public Use
  Company Number: ES-ELI_LILLY_AND_COMPANY-ES201301008158

PATIENT
  Age: 51 Year
  Sex: Female

DRUGS (9)
  1. FORSTEO [Suspect]
     Active Substance: TERIPARATIDE
     Indication: OSTEOPOROSIS
     Dosage: 20 UG, QD
     Route: 058
     Dates: start: 20120417, end: 20120828
  2. URSOBILANE [Concomitant]
     Indication: HEPATIC CIRRHOSIS
     Dosage: UNK, UNKNOWN
     Route: 065
  3. CALCITONINE [Concomitant]
     Indication: OSTEOPOROTIC FRACTURE
     Dosage: 200 IU, UNKNOWN
     Route: 045
     Dates: start: 201202, end: 20120828
  4. FUROSEMIDE. [Concomitant]
     Active Substance: FUROSEMIDE
     Indication: HEPATIC CIRRHOSIS
     Dosage: UNK, UNKNOWN
     Route: 065
  5. CALCIUM CARBONATE. [Concomitant]
     Active Substance: CALCIUM CARBONATE
     Indication: OSTEOPOROTIC FRACTURE
     Dosage: 500 MG, QD
     Route: 065
     Dates: start: 20120417, end: 20120529
  6. 25-HYDROXYCHOLECALCIFEROL [Concomitant]
     Indication: OSTEOPOROTIC FRACTURE
     Dosage: 32000 IU, MONTHLY (1/M)
  7. ALDACTONE [Concomitant]
     Active Substance: SPIRONOLACTONE
     Indication: HEPATIC CIRRHOSIS
     Dosage: UNK, UNKNOWN
     Route: 065
  8. HIDROFEROL [Concomitant]
     Active Substance: CALCIFEDIOL
     Indication: OSTEOPOROTIC FRACTURE
     Dosage: 1600 IU, 2/M
     Route: 065
     Dates: start: 20120417, end: 20120828
  9. 25-HYDROXYCHOLECALCIFEROL [Concomitant]
     Dosage: 16000 IU, MONTHLY (1/M)

REACTIONS (7)
  - Calciphylaxis [Recovering/Resolving]
  - Infected skin ulcer [Not Recovered/Not Resolved]
  - Fistula [Unknown]
  - Peritonitis [Unknown]
  - Umbilical hernia [Unknown]
  - Septic shock [Unknown]
  - Ascites [Unknown]

NARRATIVE: CASE EVENT DATE: 20120723
